FAERS Safety Report 11863797 (Version 1)
Quarter: 2015Q4

REPORT INFORMATION
  Report Type: Spontaneous
  Country: FR (occurrence: FR)
  Receive Date: 20151223
  Receipt Date: 20151223
  Transmission Date: 20160305
  Serious: Yes (Hospitalization)
  Sender: FDA-Public Use
  Company Number: FR-BAYER-2015-472310

PATIENT
  Age: 47 Year
  Sex: Female

DRUGS (9)
  1. STROMECTOL [Concomitant]
     Active Substance: IVERMECTIN
     Indication: PROPHYLAXIS
     Dosage: STROMECTOL 200 MCG: 4 TABLETS ONCE
     Dates: start: 20151125
  2. STIVARGA [Suspect]
     Active Substance: REGORAFENIB
     Dosage: 160 MG, QD
     Route: 048
     Dates: start: 20151104, end: 20151116
  3. CORTANCYL [Concomitant]
     Active Substance: PREDNISONE
     Dosage: 10MG, 1 TABLET IN THE MORNING
  4. IXPRIM [Concomitant]
     Active Substance: ACETAMINOPHEN\TRAMADOL HYDROCHLORIDE
     Indication: PAIN
     Dosage: PRN
  5. STIVARGA [Suspect]
     Active Substance: REGORAFENIB
     Dosage: 80MG DAILY, 2 TABLETS/DAY DURING ONE WEEK.
     Route: 048
     Dates: start: 20151203
  6. STIVARGA [Suspect]
     Active Substance: REGORAFENIB
     Dosage: 40 MG DAILY, 1 TABLET/DAY DURING ONE WEEK.
     Route: 048
     Dates: start: 20151124
  7. IBUPROFEN [IBUPROFEN] [Concomitant]
     Active Substance: IBUPROFEN
     Indication: PAIN
     Dosage: PRN
  8. IBUPROFEN [IBUPROFEN] [Concomitant]
     Active Substance: IBUPROFEN
     Indication: ARTHRALGIA
  9. DOLIPRANE [Concomitant]
     Active Substance: ACETAMINOPHEN
     Indication: PAIN
     Dosage: 1000 MG: 1 TABLET 3 TIMES A DAY IF PAIN OR FEVER.

REACTIONS (5)
  - Eosinophilia [Recovered/Resolved]
  - Pyrexia [Recovered/Resolved]
  - Pyrexia [None]
  - Face oedema [Recovered/Resolved]
  - Rash maculo-papular [Recovered/Resolved]

NARRATIVE: CASE EVENT DATE: 20151114
